FAERS Safety Report 4942762-0 (Version None)
Quarter: 2006Q1

REPORT INFORMATION
  Report Type: 
  Country: None (occurrence: None)
  Receive Date: 20060309
  Receipt Date: 20060303
  Transmission Date: 20060701
  Serious: Yes (Death, Hospitalization)
  Sender: FDA-Public Use
  Company Number: HQWYE215008MAR06

PATIENT
  Age: 75 Year
  Sex: Female

DRUGS (6)
  1. TIGECYCLINE (TIGECYCLINE, INJECTION) [Suspect]
     Indication: URINARY TRACT INFECTION
     Dosage: 100 MG LOAD, 50 MG EVERY 12 HOURS, INTRAVENOUS
     Route: 042
     Dates: start: 20060222, end: 20060223
  2. BISOPROLOL FUMARATE [Concomitant]
  3. INSULIN (INSULIN) [Concomitant]
  4. AMIKACIN [Concomitant]
  5. CIPROFLOXACIN [Concomitant]
  6. CEFTRIAXONE [Concomitant]

REACTIONS (2)
  - ENCEPHALOPATHY [None]
  - JAUNDICE [None]
